FAERS Safety Report 6920749-6 (Version None)
Quarter: 2010Q3

REPORT INFORMATION
  Report Type: 
  Country: None (occurrence: None)
  Receive Date: 20100812
  Receipt Date: 20100729
  Transmission Date: 20110219
  Serious: Yes (Other)
  Sender: FDA-Public Use
  Company Number: US-ELI_LILLY_AND_COMPANY-US201007007815

PATIENT
  Age: 59 Year
  Sex: Female

DRUGS (5)
  1. EFFIENT [Suspect]
     Indication: PERCUTANEOUS CORONARY INTERVENTION
     Dosage: 60 MG, OTHER
     Dates: start: 20100729
  2. EFFIENT [Suspect]
     Dosage: 1 D/F, UNKNOWN
     Dates: start: 20100729
  3. REOPRO [Concomitant]
     Indication: PERCUTANEOUS CORONARY INTERVENTION
     Dosage: 22 MG, BOLUS
  4. REOPRO [Concomitant]
     Dosage: 10 UG, PER MIN DRIP
  5. HEPARIN [Concomitant]

REACTIONS (1)
  - CORONARY ARTERY DISEASE [None]
